FAERS Safety Report 23813555 (Version 1)
Quarter: 2024Q2

REPORT INFORMATION
  Report Type: Spontaneous
  Country: NL (occurrence: NL)
  Receive Date: 20240503
  Receipt Date: 20240503
  Transmission Date: 20240716
  Serious: Yes (Other)
  Sender: FDA-Public Use
  Company Number: NL-MLMSERVICE-20240416-PI028109-00101-1

PATIENT
  Age: 12 Year
  Sex: Female

DRUGS (11)
  1. CARBOPLATIN [Suspect]
     Active Substance: CARBOPLATIN
     Indication: Neuroblastoma
  2. CISPLATIN [Suspect]
     Active Substance: CISPLATIN
     Indication: Neuroblastoma
  3. ETOPOSIDE [Suspect]
     Active Substance: ETOPOSIDE
     Indication: Neuroblastoma
  4. DACARBAZINE [Suspect]
     Active Substance: DACARBAZINE
     Indication: Neuroblastoma
  5. IFOSFAMIDE [Suspect]
     Active Substance: IFOSFAMIDE
     Indication: Neuroblastoma
  6. VINCRISTINE [Suspect]
     Active Substance: VINCRISTINE
     Indication: Neuroblastoma
  7. MELPHALAN [Suspect]
     Active Substance: MELPHALAN
     Indication: Neuroblastoma
  8. VINDESINE [Suspect]
     Active Substance: VINDESINE
     Indication: Neuroblastoma
  9. DINUTUXIMAB [Concomitant]
     Active Substance: DINUTUXIMAB
  10. ISOTRETINOIN [Concomitant]
     Active Substance: ISOTRETINOIN
  11. ETOPOSIDE [Suspect]
     Active Substance: ETOPOSIDE
     Indication: Neuroblastoma

REACTIONS (2)
  - Premature menopause [Recovering/Resolving]
  - Off label use [Unknown]
